FAERS Safety Report 8933601 (Version 4)
Quarter: 2013Q3

REPORT INFORMATION
  Report Type: Spontaneous
  Country: PR (occurrence: PR)
  Receive Date: 20121128
  Receipt Date: 20130828
  Transmission Date: 20140515
  Serious: No
  Sender: FDA-Public Use
  Company Number: PR-ABBOTT-12P-131-1007538-00

PATIENT
  Age: 52 Year
  Sex: Male
  Weight: 121.67 kg

DRUGS (9)
  1. ANDROGEL [Suspect]
     Indication: PRODUCT USED FOR UNKNOWN INDICATION
     Dosage: 2 PUMPS
     Route: 061
     Dates: start: 20120926, end: 201211
  2. AZOR [Suspect]
     Indication: HYPERTENSION
     Dosage: UNKNOWN
     Dates: start: 201209, end: 201211
  3. CRESTOR [Concomitant]
     Indication: PRODUCT USED FOR UNKNOWN INDICATION
  4. OMEPRAZOLE [Concomitant]
     Indication: PRODUCT USED FOR UNKNOWN INDICATION
     Dosage: UNKNOWN
  5. RANITIDINE [Concomitant]
     Indication: PRODUCT USED FOR UNKNOWN INDICATION
     Dosage: UNKNOWN
  6. PLAVIX [Concomitant]
     Indication: PRODUCT USED FOR UNKNOWN INDICATION
     Dosage: UNKNOWN
  7. HYDROCHLOROTHIAZIDE [Concomitant]
     Indication: PRODUCT USED FOR UNKNOWN INDICATION
     Dosage: UNKNOWN
  8. NADOLOL [Concomitant]
     Indication: HYPERTENSION
  9. DIOVAN [Concomitant]
     Indication: HYPERTENSION
     Dates: start: 1999, end: 201209

REACTIONS (3)
  - Vertigo positional [Unknown]
  - Dizziness [Unknown]
  - Nausea [Unknown]
